APPROVED DRUG PRODUCT: PENTOSTATIN
Active Ingredient: PENTOSTATIN
Strength: 10MG/VIAL
Dosage Form/Route: INJECTABLE;INJECTION
Application: A203554 | Product #001
Applicant: RISING PHARMA HOLDING INC
Approved: Sep 19, 2014 | RLD: No | RS: No | Type: DISCN